FAERS Safety Report 5376556-1 (Version None)
Quarter: 2007Q2

REPORT INFORMATION
  Report Type: 
  Country: None (occurrence: None)
  Receive Date: 20070629
  Receipt Date: 20070614
  Transmission Date: 20071010
  Serious: Yes (Life-Threatening, Hospitalization, Other)
  Sender: FDA-Public Use
  Company Number: VER_0053_2007

PATIENT
  Sex: Male

DRUGS (3)
  1. EPINEPHRINE [Suspect]
     Indication: ANAPHYLACTIC REACTION
     Dosage: SUBCUTANEOUS
     Route: 058
     Dates: start: 20070101, end: 20070101
  2. EPINEPHRINE [Suspect]
     Indication: FOOD ALLERGY
     Dosage: SUBCUTANEOUS
     Route: 058
     Dates: start: 20070101, end: 20070101
  3. VENTOLIN [Concomitant]

REACTIONS (2)
  - DEVICE FAILURE [None]
  - DRUG ADMINISTRATION ERROR [None]
